FAERS Safety Report 18998382 (Version 2)
Quarter: 2021Q1

REPORT INFORMATION
  Report Type: Spontaneous
  Country: US (occurrence: US)
  Receive Date: 20210311
  Receipt Date: 20210325
  Transmission Date: 20210420
  Serious: Yes (Death, Life-Threatening, Hospitalization, Other)
  Sender: FDA-Public Use
  Company Number: US-AUROBINDO-AUR-APL-2021-009358

PATIENT
  Age: 86 Year
  Sex: Male

DRUGS (2)
  1. FLECAINIDE [Suspect]
     Active Substance: FLECAINIDE
     Dosage: 150 MILLIGRAM, TWO TIMES A DAY
     Route: 065
  2. FLECAINIDE [Suspect]
     Active Substance: FLECAINIDE
     Indication: ATRIAL FIBRILLATION
     Dosage: 100 MILLIGRAM, TWO TIMES A DAY
     Route: 065

REACTIONS (10)
  - Pulseless electrical activity [Recovered/Resolved]
  - Negative cardiac inotropic effect [Recovered/Resolved]
  - Ventricular dyssynchrony [Recovered/Resolved]
  - Brain injury [Fatal]
  - Device capturing issue [Recovered/Resolved]
  - Cardiac arrest [Recovered/Resolved]
  - Bradycardia [Recovered/Resolved]
  - Electrocardiogram QRS complex prolonged [Recovered/Resolved]
  - Toxicity to various agents [Fatal]
  - Electrocardiogram QT prolonged [Recovered/Resolved]
